FAERS Safety Report 24249248 (Version 3)
Quarter: 2024Q3

REPORT INFORMATION
  Report Type: Spontaneous
  Country: US (occurrence: US)
  Receive Date: 20240826
  Receipt Date: 20240904
  Transmission Date: 20241017
  Serious: No
  Sender: PFIZER
  Company Number: US-PFIZER INC-202400242098

PATIENT
  Age: 82 Year
  Sex: Female
  Weight: 72.12 kg

DRUGS (2)
  1. BRAFTOVI [Suspect]
     Active Substance: ENCORAFENIB
     Indication: Lung neoplasm malignant
     Dosage: 450 MG, DAILY (75 MG, 6 CAPSULES DAILY)
     Route: 048
     Dates: start: 20240808
  2. MEKTOVI [Suspect]
     Active Substance: BINIMETINIB
     Indication: Lung neoplasm malignant
     Dosage: 90 MG, DAILY (15 MG, 6 PILLS A DAY)
     Dates: start: 20240808

REACTIONS (1)
  - Vomiting [Unknown]

NARRATIVE: CASE EVENT DATE: 20240822
